APPROVED DRUG PRODUCT: ENILLORING
Active Ingredient: ETHINYL ESTRADIOL; ETONOGESTREL
Strength: 0.015MG/24HR;0.12MG/24HR
Dosage Form/Route: RING;VAGINAL
Application: A211157 | Product #001 | TE Code: AB
Applicant: XIROMED PHARMA ESPANA SL
Approved: Jun 29, 2023 | RLD: No | RS: No | Type: RX